FAERS Safety Report 5279469-9 (Version None)
Quarter: 2007Q1

REPORT INFORMATION
  Report Type: 
  Country: None (occurrence: None)
  Receive Date: 20070328
  Receipt Date: 20070320
  Transmission Date: 20070707
  Serious: Yes (Hospitalization, Other)
  Sender: FDA-Public Use
  Company Number: US-PFIZER INC-2006125710

PATIENT
  Sex: Female

DRUGS (2)
  1. CELEBREX [Suspect]
     Indication: PAIN
     Route: 048
     Dates: start: 20020630, end: 20020630
  2. VIOXX [Suspect]
     Route: 048

REACTIONS (1)
  - CARDIOVASCULAR DISORDER [None]
